FAERS Safety Report 4714535-5 (Version None)
Quarter: 2005Q3

REPORT INFORMATION
  Report Type: 
  Country: None (occurrence: None)
  Receive Date: 20050714
  Receipt Date: 20050303
  Transmission Date: 20060218
  Serious: Yes (Hospitalization, Other)
  Sender: FDA-Public Use
  Company Number: US-MERCK-0503USA00457

PATIENT
  Age: 71 Year
  Sex: Female

DRUGS (2)
  1. VIOXX [Suspect]
     Route: 048
     Dates: start: 20000101
  2. VIOXX [Suspect]
     Route: 048
     Dates: start: 20020101, end: 20040901

REACTIONS (14)
  - CHEST PAIN [None]
  - CORONARY ARTERY DISEASE [None]
  - DYSPNOEA [None]
  - HYPERTENSION [None]
  - INSOMNIA [None]
  - LABORATORY TEST INTERFERENCE [None]
  - LYMPHADENOPATHY [None]
  - MIGRAINE WITH AURA [None]
  - MYOCARDIAL INFARCTION [None]
  - MYOCARDITIS [None]
  - RECTAL TENESMUS [None]
  - RESTLESS LEGS SYNDROME [None]
  - RETINAL HAEMORRHAGE [None]
  - VISUAL DISTURBANCE [None]
